FAERS Safety Report 16059128 (Version 2)
Quarter: 2019Q1

REPORT INFORMATION
  Report Type: Report from Study
  Country: PK (occurrence: PK)
  Receive Date: 20190311
  Receipt Date: 20190322
  Transmission Date: 20190418
  Serious: Yes (Death, Other)
  Sender: FDA-Public Use
  Company Number: PHHY2019PK054428

PATIENT
  Age: 57 Year
  Sex: Male
  Weight: 72 kg

DRUGS (1)
  1. TASIGNA [Suspect]
     Active Substance: NILOTINIB
     Indication: CHRONIC MYELOID LEUKAEMIA
     Dosage: 2 DF, BID
     Route: 048
     Dates: start: 20180502

REACTIONS (3)
  - Haemorrhage [Fatal]
  - Thrombocytopenia [Unknown]
  - Contusion [Unknown]

NARRATIVE: CASE EVENT DATE: 20180718
